FAERS Safety Report 9000313 (Version 1)
Quarter: 2013Q1

REPORT INFORMATION
  Report Type: Spontaneous
  Country: US (occurrence: US)
  Receive Date: 20130107
  Receipt Date: 20130107
  Transmission Date: 20140127
  Serious: No
  Sender: FDA-Public Use
  Company Number: US-009507513-1212USA007978

PATIENT
  Sex: 0

DRUGS (3)
  1. FOSAMAX [Suspect]
     Indication: OSTEOPOROSIS
     Dosage: 10 MG, QD
     Route: 048
     Dates: start: 19990318
  2. ALENDRONATE SODIUM [Suspect]
     Indication: OSTEOPOROSIS
     Dosage: UNK
     Route: 048
     Dates: start: 20080620, end: 20090305
  3. FOSAMAX [Suspect]
     Dosage: 70 MG, QW
     Route: 048
     Dates: end: 20080620

REACTIONS (8)
  - Gait disturbance [Recovering/Resolving]
  - Bone pain [Recovered/Resolved]
  - Oesophageal pain [Unknown]
  - Chest discomfort [Recovered/Resolved]
  - Chest pain [Recovered/Resolved]
  - Lower limb fracture [Recovering/Resolving]
  - Spinal pain [Recovering/Resolving]
  - Hyperventilation [Recovered/Resolved]
